FAERS Safety Report 14611077 (Version 1)
Quarter: 2018Q1

REPORT INFORMATION
  Report Type: Report from Study
  Country: None (occurrence: CO)
  Receive Date: 20180308
  Receipt Date: 20180308
  Transmission Date: 20180509
  Serious: Yes (Other)
  Sender: FDA-Public Use
  Company Number: CO-ABBVIE-18K-036-2279721-00

PATIENT
  Age: 51 Year
  Sex: Male
  Weight: 77 kg

DRUGS (1)
  1. HUMIRA [Suspect]
     Active Substance: ADALIMUMAB
     Indication: PSORIATIC ARTHROPATHY
     Route: 058
     Dates: start: 20170725, end: 20170804

REACTIONS (2)
  - Facial paralysis [Recovering/Resolving]
  - Psychiatric symptom [Unknown]

NARRATIVE: CASE EVENT DATE: 20180218
